FAERS Safety Report 10479434 (Version 2)
Quarter: 2014Q3

REPORT INFORMATION
  Report Type: Report from Study
  Country: US (occurrence: US)
  Receive Date: 20140926
  Receipt Date: 20140926
  Transmission Date: 20150326
  Serious: Yes (Hospitalization)
  Sender: FDA-Public Use
  Company Number: US-ALEXION PHARMACEUTICALS INC-A201102473

PATIENT
  Sex: Female

DRUGS (1)
  1. SOLIRIS [Suspect]
     Active Substance: ECULIZUMAB
     Indication: PAROXYSMAL NOCTURNAL HAEMOGLOBINURIA
     Dosage: UNK
     Route: 042

REACTIONS (8)
  - Fatigue [Unknown]
  - Asthenia [Unknown]
  - Headache [Unknown]
  - Pregnancy [Unknown]
  - Haemoglobin decreased [Unknown]
  - Unevaluable event [Recovered/Resolved]
  - Quality of life decreased [Unknown]
  - Renal pain [Unknown]
